FAERS Safety Report 6926776-7 (Version None)
Quarter: 2010Q3

REPORT INFORMATION
  Report Type: 
  Country: None (occurrence: None)
  Receive Date: 20100816
  Receipt Date: 20100608
  Transmission Date: 20110219
  Serious: No
  Sender: FDA-Public Use
  Company Number: US-ABBOTT-10P-163-0649831-00

PATIENT
  Sex: Female

DRUGS (1)
  1. SIMCOR [Suspect]
     Indication: PRODUCT USED FOR UNKNOWN INDICATION
     Dosage: 1000MG/20 AT BEDTIME
     Dates: start: 20100605

REACTIONS (3)
  - COUGH [None]
  - MALAISE [None]
  - PARANASAL SINUS HYPERSECRETION [None]
